FAERS Safety Report 23643824 (Version 6)
Quarter: 2024Q2

REPORT INFORMATION
  Report Type: Spontaneous
  Country: US (occurrence: US)
  Receive Date: 20240318
  Receipt Date: 20240531
  Transmission Date: 20240716
  Serious: No
  Sender: FDA-Public Use
  Company Number: US-Blueprint Medicines Corporation-2761

PATIENT
  Age: 67 Year
  Sex: Male

DRUGS (4)
  1. AYVAKIT [Suspect]
     Active Substance: AVAPRITINIB
     Indication: Gastrointestinal stromal tumour
     Route: 048
     Dates: start: 20240301
  2. AYVAKIT [Suspect]
     Active Substance: AVAPRITINIB
     Route: 065
  3. AYVAKIT [Suspect]
     Active Substance: AVAPRITINIB
     Route: 065
  4. AYVAKIT [Suspect]
     Active Substance: AVAPRITINIB
     Route: 048
     Dates: start: 20240301

REACTIONS (16)
  - Liver disorder [Not Recovered/Not Resolved]
  - Hepatic enzyme abnormal [Recovered/Resolved]
  - Hepatic enzyme increased [Recovering/Resolving]
  - Pain [Recovering/Resolving]
  - Nausea [Recovering/Resolving]
  - Lacrimation increased [Recovering/Resolving]
  - Swelling face [Not Recovered/Not Resolved]
  - Malaise [Recovering/Resolving]
  - Feeling jittery [Unknown]
  - Muscular weakness [Unknown]
  - Adverse drug reaction [Not Recovered/Not Resolved]
  - Eye swelling [Recovering/Resolving]
  - Blood test abnormal [Not Recovered/Not Resolved]
  - Tumour pain [Not Recovered/Not Resolved]
  - Decreased appetite [Not Recovered/Not Resolved]
  - Glassy eyes [Not Recovered/Not Resolved]

NARRATIVE: CASE EVENT DATE: 20240301
